FAERS Safety Report 15312998 (Version 1)
Quarter: 2018Q3

REPORT INFORMATION
  Report Type: Spontaneous
  Country: US (occurrence: US)
  Receive Date: 20180823
  Receipt Date: 20180823
  Transmission Date: 20181010
  Serious: No
  Sender: FDA-Public Use
  Company Number: US-ACTELION-A-NJ2018-177679

PATIENT
  Age: 39 Year
  Sex: Male

DRUGS (1)
  1. VALCHLOR [Suspect]
     Active Substance: MECHLORETHAMINE
     Indication: MYCOSIS FUNGOIDES
     Dosage: UNK,
     Route: 061
     Dates: start: 20180801

REACTIONS (3)
  - Application site pruritus [Unknown]
  - Application site dryness [Unknown]
  - Skin exfoliation [Unknown]
